FAERS Safety Report 14913624 (Version 4)
Quarter: 2018Q2

REPORT INFORMATION
  Report Type: Report from Study
  Country: JP (occurrence: JP)
  Receive Date: 20180518
  Receipt Date: 20180608
  Transmission Date: 20180711
  Serious: Yes (Death)
  Sender: FDA-Public Use
  Company Number: JP-BEH-2018090784

PATIENT
  Age: 78 Year
  Sex: Male
  Weight: 49.6 kg

DRUGS (8)
  1. MIDAZOLAM [Concomitant]
     Active Substance: MIDAZOLAM HYDROCHLORIDE
     Dosage: 2 ML/H, UNK
     Route: 065
     Dates: start: 20180502, end: 20180502
  2. FENTANYL. [Concomitant]
     Active Substance: FENTANYL
     Indication: ANALGESIC THERAPY
     Dosage: UNK
     Route: 065
     Dates: start: 20180502, end: 20180502
  3. PROPOFOL. [Concomitant]
     Active Substance: PROPOFOL
     Indication: SEDATION
     Dosage: UNK
     Route: 065
     Dates: start: 20180502, end: 20180502
  4. HARTMANN                           /00490001/ [Concomitant]
     Dosage: 10 ML/H, UNK
     Route: 065
     Dates: start: 20180502, end: 20180502
  5. BERIPLEX P/N [Suspect]
     Active Substance: COAGULATION FACTOR IX HUMAN\COAGULATION FACTOR VII HUMAN\COAGULATION FACTOR X HUMAN\PROTEIN C\PROTEIN S HUMAN\PROTHROMBIN
     Indication: HAEMORRHAGE
     Dosage: UNK
     Route: 042
     Dates: start: 20180502, end: 20180502
  6. NICARDIPINE [Concomitant]
     Active Substance: NICARDIPINE
     Dosage: 1 ML/H, UNK
     Route: 065
     Dates: start: 20180502, end: 20180502
  7. WARFARIN [Concomitant]
     Active Substance: WARFARIN
     Dosage: 10 MG, QD
     Route: 065
  8. VECURONIUM [Concomitant]
     Active Substance: VECURONIUM BROMIDE
     Indication: HYPOTONIA
     Dosage: UNK
     Route: 065
     Dates: start: 20180502, end: 20180502

REACTIONS (1)
  - Cerebral haemorrhage [Fatal]

NARRATIVE: CASE EVENT DATE: 20180502
